FAERS Safety Report 19406568 (Version 2)
Quarter: 2021Q2

REPORT INFORMATION
  Report Type: Spontaneous
  Country: CN (occurrence: CN)
  Receive Date: 20210611
  Receipt Date: 20210614
  Transmission Date: 20210717
  Serious: Yes (Other)
  Sender: FDA-Public Use
  Company Number: CN-009507513-2106CHN002016

PATIENT
  Age: 76 Year
  Sex: Male
  Weight: 55 kg

DRUGS (2)
  1. POLYMYXIN [Concomitant]
     Active Substance: POLYMYXIN
     Indication: INFECTION
     Dosage: UNK
     Dates: start: 20210510
  2. TIENAM [Suspect]
     Active Substance: CILASTATIN SODIUM\IMIPENEM
     Indication: INFECTION
     Dosage: 1 GRAM, FOUR TIMES PER DAY
     Route: 041
     Dates: start: 20210510, end: 20210525

REACTIONS (1)
  - Epilepsy [Unknown]

NARRATIVE: CASE EVENT DATE: 20210525
